FAERS Safety Report 7213187-2 (Version None)
Quarter: 2011Q1

REPORT INFORMATION
  Report Type: 
  Country: None (occurrence: None)
  Receive Date: 20110106
  Receipt Date: 20101228
  Transmission Date: 20110831
  Serious: Yes (Other)
  Sender: FDA-Public Use
  Company Number: US-ASTRAZENECA-2010SE61094

PATIENT
  Age: 70 Year
  Sex: Female

DRUGS (1)
  1. PULMICORT FLEXHALER [Suspect]
     Route: 055
     Dates: start: 20100701

REACTIONS (4)
  - NASOPHARYNGITIS [None]
  - BLINDNESS UNILATERAL [None]
  - MALAISE [None]
  - DRUG DOSE OMISSION [None]
